FAERS Safety Report 7246778-3 (Version None)
Quarter: 2011Q1

REPORT INFORMATION
  Report Type: 
  Country: None (occurrence: None)
  Receive Date: 20110127
  Receipt Date: 20110121
  Transmission Date: 20110831
  Serious: Yes (Other)
  Sender: FDA-Public Use
  Company Number: US-BAYER-2011-007704

PATIENT
  Sex: Male

DRUGS (10)
  1. ACETAMINOPHEN W/ CODEINE [Concomitant]
  2. OMEPRAZOLE [Concomitant]
  3. AMLODIPINE BESYLATE [Concomitant]
  4. NEXAVAR [Suspect]
     Indication: HEPATIC NEOPLASM MALIGNANT
     Dosage: 400 MG, BID
     Route: 048
     Dates: start: 20100712
  5. ATENOLOL [Concomitant]
  6. BENAZEPRIL HYDROCHLORIDE [Concomitant]
  7. PHENYTOIN SODIUM [Concomitant]
  8. HYDROMORPHONE [Concomitant]
  9. COLCHICINE [Concomitant]
  10. IBUPROFEN [Concomitant]
     Dosage: UNK

REACTIONS (3)
  - HAEMATOCHEZIA [None]
  - DYSPNOEA [None]
  - BLISTER [None]
